FAERS Safety Report 4736699-X (Version None)
Quarter: 2005Q3

REPORT INFORMATION
  Report Type: 
  Country: None (occurrence: None)
  Receive Date: 20050808
  Receipt Date: 20050808
  Transmission Date: 20060218
  Serious: Yes (Life-Threatening)
  Sender: FDA-Public Use
  Company Number: None

PATIENT
  Age: 65 Year
  Sex: Female
  Weight: 68.0396 kg

DRUGS (6)
  1. CYMBALTA [Suspect]
     Indication: ANXIETY
     Dosage: 60 MG ORAL/DLY, 30 MG ORAL/DLY
     Route: 048
     Dates: start: 20050215
  2. CYMBALTA [Suspect]
     Indication: DEPRESSION
     Dosage: 60 MG ORAL/DLY, 30 MG ORAL/DLY
     Route: 048
     Dates: start: 20050215
  3. CYMBALTA [Suspect]
     Indication: ANXIETY
     Dosage: 60 MG ORAL/DLY, 30 MG ORAL/DLY
     Route: 048
     Dates: start: 20050112
  4. CYMBALTA [Suspect]
     Indication: DEPRESSION
     Dosage: 60 MG ORAL/DLY, 30 MG ORAL/DLY
     Route: 048
     Dates: start: 20050112
  5. KLONOPIN [Concomitant]
  6. ADDERALL 30 [Concomitant]

REACTIONS (7)
  - ABNORMAL BEHAVIOUR [None]
  - AGITATION [None]
  - ANGER [None]
  - COMPULSIONS [None]
  - NIGHTMARE [None]
  - SELF-INJURIOUS IDEATION [None]
  - SUICIDAL IDEATION [None]
